FAERS Safety Report 7809512-1 (Version None)
Quarter: 2011Q4

REPORT INFORMATION
  Report Type: 
  Country: None (occurrence: None)
  Receive Date: 20111012
  Receipt Date: 20111003
  Transmission Date: 20120403
  Serious: Yes (Hospitalization)
  Sender: FDA-Public Use
  Company Number: PHHY2011SE87117

PATIENT
  Age: 74 Year
  Sex: Male

DRUGS (7)
  1. DIGOXIN [Concomitant]
     Dosage: 0.13 MG, UNK
     Route: 048
  2. METOPROLOL TARTRATE [Concomitant]
  3. LEVOTHYROXINE SODIUM [Concomitant]
     Dosage: 50 UG, UNK
     Route: 048
  4. GLEEVEC [Suspect]
     Indication: CHRONIC MYELOID LEUKAEMIA
     Dosage: 400 MG, DAILY
     Route: 048
     Dates: start: 20110117
  5. NYCOMED AB [Concomitant]
  6. WARFARIN SODIUM [Concomitant]
     Dosage: 2.5 MG, UNK
     Route: 048
  7. FUROSEMIDE [Concomitant]
     Dosage: 40 MG, UNK
     Route: 048

REACTIONS (1)
  - VASCULITIS [None]
